FAERS Safety Report 8861992 (Version 5)
Quarter: 2013Q1

REPORT INFORMATION
  Report Type: Spontaneous
  Country: US (occurrence: US)
  Receive Date: 20121025
  Receipt Date: 20130212
  Transmission Date: 20140127
  Serious: Yes (Other)
  Sender: FDA-Public Use
  Company Number: US-JNJFOC-20121012208

PATIENT
  Age: 47 Year
  Sex: Male
  Weight: 70.76 kg

DRUGS (4)
  1. ZYRTEC-D [Suspect]
     Indication: SINUSITIS
     Route: 048
  2. ZYRTEC-D [Suspect]
     Indication: SINUSITIS
     Route: 048
     Dates: start: 20121017, end: 20121017
  3. NOVOLOG [Concomitant]
     Indication: DIABETES MELLITUS
     Dosage: SINCE 2 YEARS
     Route: 065
  4. GLIMEPIRIDE [Concomitant]
     Indication: OROPHARYNGEAL PAIN

REACTIONS (1)
  - Blood glucose increased [Recovered/Resolved]
